FAERS Safety Report 5035522-6 (Version None)
Quarter: 2006Q2

REPORT INFORMATION
  Report Type: 
  Country: None (occurrence: None)
  Receive Date: 20060627
  Receipt Date: 20060612
  Transmission Date: 20061013
  Serious: Yes (Death, Other)
  Sender: FDA-Public Use
  Company Number: PHBS2006JP08880

PATIENT
  Age: 86 Year
  Sex: Female
  Weight: 47.2 kg

DRUGS (15)
  1. ADALAT [Concomitant]
     Indication: HYPERTENSION
     Dosage: 10 MG, BID
     Route: 048
     Dates: end: 20020601
  2. ADALAT [Concomitant]
     Dosage: 20 MG, BID
     Route: 048
     Dates: start: 20020601
  3. SEPAZON [Concomitant]
     Dosage: 2 MG/D
     Route: 048
  4. ALLOPURINOL [Concomitant]
     Dosage: 100 MG/D
     Route: 048
  5. LASIX [Concomitant]
     Indication: RENAL FAILURE CHRONIC
     Dosage: 20 MG/D
     Route: 048
  6. LASIX [Concomitant]
     Dosage: 20 MG/D
     Route: 042
  7. DESFERAL [Concomitant]
     Dosage: 500 MG/D
     Route: 042
     Dates: start: 20030101
  8. PURSENNID [Concomitant]
     Dosage: 24 MG/D
     Route: 048
  9. CALCIUM POLYSTYRENE SULFONATE [Concomitant]
     Dosage: 75 G/D
     Route: 048
  10. IMURAN [Concomitant]
     Dosage: 25 MG/D
     Route: 048
  11. NEORAL [Suspect]
     Indication: APLASIA PURE RED CELL
     Dosage: 200 MG/D
     Route: 048
     Dates: start: 20010101, end: 20020901
  12. NEORAL [Suspect]
     Dosage: 100 MG/D
     Route: 048
     Dates: start: 20020901, end: 20030101
  13. NEORAL [Suspect]
     Dosage: 200 MG/D
     Route: 048
     Dates: start: 20031001, end: 20040801
  14. NEORAL [Suspect]
     Dosage: 150 MG/D
     Route: 048
     Dates: start: 20030101, end: 20031001
  15. NEORAL [Suspect]
     Dosage: 250 MG/D
     Route: 048
     Dates: start: 20040901

REACTIONS (40)
  - ANAEMIA [None]
  - ANURIA [None]
  - ASCITES [None]
  - ASTHMA [None]
  - ATRIAL TACHYCARDIA [None]
  - BENIGN OVARIAN TUMOUR [None]
  - BLOOD CREATININE INCREASED [None]
  - BLOOD POTASSIUM INCREASED [None]
  - BODY MASS INDEX INCREASED [None]
  - BRONCHITIS [None]
  - CARDIAC FAILURE CONGESTIVE [None]
  - CARDIO-RESPIRATORY ARREST [None]
  - CREATININE RENAL CLEARANCE DECREASED [None]
  - CYSTITIS NONINFECTIVE [None]
  - DIABETES MELLITUS [None]
  - DYSPNOEA [None]
  - GLUCOSE TOLERANCE IMPAIRED [None]
  - GLUCOSE URINE PRESENT [None]
  - GLYCOSYLATED HAEMOGLOBIN INCREASED [None]
  - HAEMOGLOBIN DECREASED [None]
  - HAEMOSIDEROSIS [None]
  - HYPERTENSION [None]
  - LUNG CONSOLIDATION [None]
  - METABOLIC ACIDOSIS [None]
  - OBESITY [None]
  - OEDEMA PERIPHERAL [None]
  - PHARYNGOLARYNGEAL PAIN [None]
  - PLEURAL EFFUSION [None]
  - PNEUMONIA [None]
  - PRODUCTIVE COUGH [None]
  - PULMONARY OEDEMA [None]
  - REFUSAL OF TREATMENT BY PATIENT [None]
  - RENAL ARTERY STENOSIS [None]
  - RENAL ATROPHY [None]
  - RENAL FAILURE ACUTE [None]
  - RENAL IMPAIRMENT [None]
  - SPLENITIS [None]
  - THYROID GLAND CANCER [None]
  - VENTRICULAR HYPERTROPHY [None]
  - WHEEZING [None]
